FAERS Safety Report 25484035 (Version 1)
Quarter: 2025Q2

REPORT INFORMATION
  Report Type: Spontaneous
  Country: US (occurrence: US)
  Receive Date: 20250626
  Receipt Date: 20250626
  Transmission Date: 20250716
  Serious: No
  Sender: TEVA
  Company Number: US-TEVA-VS-3345675

PATIENT
  Sex: Female

DRUGS (1)
  1. IMATINIB MESYLATE [Suspect]
     Active Substance: IMATINIB MESYLATE
     Indication: Product used for unknown indication
     Route: 065

REACTIONS (7)
  - Nausea [Unknown]
  - Product odour abnormal [Unknown]
  - Brain fog [Unknown]
  - Rash [Unknown]
  - Diarrhoea [Unknown]
  - Muscle spasms [Unknown]
  - Feeling abnormal [Unknown]
